FAERS Safety Report 4443479-1 (Version None)
Quarter: 2004Q3

REPORT INFORMATION
  Report Type: 
  Country: None (occurrence: None)
  Receive Date: 20040901
  Receipt Date: 20040819
  Transmission Date: 20050211
  Serious: Yes (Death)
  Sender: FDA-Public Use
  Company Number: 2004057896

PATIENT
  Sex: Female

DRUGS (4)
  1. GEODON [Suspect]
     Indication: ILL-DEFINED DISORDER
     Dosage: 120 MG (69 MG, 2 IN 1 D), ORAL
     Route: 048
     Dates: start: 20040813, end: 20040801
  2. OXCARBAZEPINE (OXCARBAZEPINE) [Concomitant]
  3. LORAZEPAM [Concomitant]
  4. OLANZAPINE [Concomitant]

REACTIONS (1)
  - DEATH [None]
